FAERS Safety Report 8112345-2 (Version None)
Quarter: 2012Q1

REPORT INFORMATION
  Report Type: 
  Country: None (occurrence: None)
  Receive Date: 20120203
  Receipt Date: 20111003
  Transmission Date: 20120608
  Serious: No
  Sender: FDA-Public Use
  Company Number: US-ASTRAZENECA-2011SE35634

PATIENT
  Age: 58 Year
  Sex: Female

DRUGS (6)
  1. VANDETANIB [Suspect]
     Indication: THYROID CANCER
     Route: 048
     Dates: start: 20110327
  2. LEVOTHYROXINE SODIUM [Concomitant]
  3. CALCIUM D [Concomitant]
  4. ATENOLOL [Concomitant]
  5. LISINOPRIL [Concomitant]
  6. MULTI-VITAMIN [Concomitant]

REACTIONS (4)
  - ADVERSE REACTION [None]
  - RASH [None]
  - BLOOD THYROID STIMULATING HORMONE DECREASED [None]
  - PAIN IN EXTREMITY [None]
